FAERS Safety Report 6621663-6 (Version None)
Quarter: 2010Q1

REPORT INFORMATION
  Report Type: 
  Country: None (occurrence: None)
  Receive Date: 20100223
  Receipt Date: 20100120
  Transmission Date: 20100710
  Serious: No
  Sender: FDA-Public Use
  Company Number: 005121

PATIENT
  Sex: Female
  Weight: 78 kg

DRUGS (11)
  1. CIMZIA [Suspect]
     Indication: RHEUMATOID ARTHRITIS
     Dosage: 200 MG EVERY 2 WEEKS SUBCUTANEOUS
     Route: 058
     Dates: start: 20091230
  2. CYMBALTA [Concomitant]
  3. PREVACID [Concomitant]
  4. SINGULAIR [Concomitant]
  5. TOPROL-XL [Concomitant]
  6. FLEXERIL [Concomitant]
  7. NEURONTIN [Concomitant]
  8. . [Concomitant]
  9. ULTRAM [Concomitant]
  10. HYDROXYZINE [Concomitant]
  11. KLONOPIN [Concomitant]

REACTIONS (1)
  - SKIN IRRITATION [None]
